FAERS Safety Report 6700197-4 (Version None)
Quarter: 2010Q2

REPORT INFORMATION
  Report Type: 
  Country: None (occurrence: None)
  Receive Date: 20100428
  Receipt Date: 20100416
  Transmission Date: 20101027
  Serious: Yes (Hospitalization, Other)
  Sender: FDA-Public Use
  Company Number: US-PFIZER INC-2009171240

PATIENT
  Sex: Female
  Weight: 90.703 kg

DRUGS (15)
  1. ZOLOFT [Suspect]
     Indication: DEPRESSION
     Dosage: 100 MG, 1X/DAY
     Route: 048
  2. ZOLOFT [Suspect]
     Dosage: 75 MG, 1X/DAY
  3. LYRICA [Suspect]
     Indication: PAIN
     Dosage: 75 MG, 3X/DAY
     Route: 048
  4. DEPO-ESTRADIOL [Suspect]
     Indication: RADICAL HYSTERECTOMY
     Dosage: UNK
  5. ADVAIR DISKUS 100/50 [Concomitant]
     Dosage: UNK
     Route: 055
  6. SEROQUEL [Concomitant]
     Dosage: 200 MG, UNK
  7. DUONEB [Concomitant]
     Dosage: UNK
  8. MONTELUKAST [Concomitant]
     Dosage: UNK
  9. K-DUR [Concomitant]
     Dosage: 20 MEQ, UNK
  10. LASIX [Concomitant]
     Dosage: UNK
  11. NEXIUM [Concomitant]
     Dosage: UNK
  12. CRESTOR [Concomitant]
     Dosage: UNK
  13. LEVOXYL [Concomitant]
     Dosage: UNK
  14. VITAMINS [Concomitant]
     Dosage: UNK
  15. MUCINEX [Concomitant]
     Dosage: UNK

REACTIONS (4)
  - CHRONIC OBSTRUCTIVE PULMONARY DISEASE [None]
  - FALL [None]
  - PNEUMONIA [None]
  - UPPER LIMB FRACTURE [None]
